FAERS Safety Report 6870833-0 (Version None)
Quarter: 2010Q3

REPORT INFORMATION
  Report Type: 
  Country: None (occurrence: None)
  Receive Date: 20100723
  Receipt Date: 20100716
  Transmission Date: 20110219
  Serious: Yes (Other)
  Sender: FDA-Public Use
  Company Number: GB-B.I. PHARMACEUTICALS,INC./RIDGEFIELD-2010-UK-00674UK

PATIENT
  Age: 73 Year
  Sex: Female

DRUGS (5)
  1. MIRAPEX [Suspect]
     Indication: PARKINSON'S DISEASE
     Route: 048
     Dates: start: 20100301, end: 20100501
  2. APOMORPHINE [Concomitant]
     Dosage: 4MG AS NECESSARY.
     Route: 058
  3. ENTACAPONE [Concomitant]
     Dosage: 600 MG
     Route: 048
  4. SINEMET [Concomitant]
     Indication: PARKINSON'S DISEASE
     Route: 048
     Dates: start: 20070701
  5. SINEMET CR [Concomitant]
     Route: 048

REACTIONS (1)
  - PARKINSON'S DISEASE [None]
